FAERS Safety Report 19075049 (Version 1)
Quarter: 2021Q1

REPORT INFORMATION
  Report Type: Spontaneous
  Country: BR (occurrence: BR)
  Receive Date: 20210330
  Receipt Date: 20210330
  Transmission Date: 20210420
  Serious: Yes (Other)
  Sender: FDA-Public Use
  Company Number: BR-TAKEDA-2021TUS019540

PATIENT
  Age: 40 Year

DRUGS (2)
  1. ENTYVIO [Suspect]
     Active Substance: VEDOLIZUMAB
     Indication: PRODUCT USED FOR UNKNOWN INDICATION
     Dosage: 300 MILLIGRAM
     Route: 065
  2. 476 (MESALAZINE/MESALAMINE) [Suspect]
     Active Substance: MESALAMINE
     Indication: PRODUCT USED FOR UNKNOWN INDICATION
     Dosage: UNK
     Route: 065
     Dates: start: 2013

REACTIONS (11)
  - Abscess drainage [Unknown]
  - Pain [Unknown]
  - Abscess [Unknown]
  - Fistula [Unknown]
  - Proctitis ulcerative [Unknown]
  - Large intestine infection [Unknown]
  - Crohn^s disease [Unknown]
  - Diarrhoea [Unknown]
  - Proctitis [Unknown]
  - Anal fistula [Unknown]
  - Rectal ulcer [Unknown]

NARRATIVE: CASE EVENT DATE: 2013
